FAERS Safety Report 6013867-0 (Version None)
Quarter: 2008Q4

REPORT INFORMATION
  Report Type: 
  Country: None (occurrence: None)
  Receive Date: 20081219
  Receipt Date: 20081209
  Transmission Date: 20090506
  Serious: Yes (Hospitalization, Other)
  Sender: FDA-Public Use
  Company Number: TW-BAYER-200832755GPV

PATIENT
  Age: 65 Year
  Sex: Female

DRUGS (2)
  1. CIPROFLOXACIN HCL [Suspect]
     Indication: URINARY TRACT INFECTION
     Route: 048
  2. CIPROFLOXACIN HCL [Suspect]
     Route: 048

REACTIONS (3)
  - PATHOGEN RESISTANCE [None]
  - PYELONEPHRITIS [None]
  - SPLENIC ABSCESS [None]
